FAERS Safety Report 9899010 (Version 1)
Quarter: 2014Q1

REPORT INFORMATION
  Report Type: Spontaneous
  Country: DE (occurrence: DE)
  Receive Date: 20140214
  Receipt Date: 20140214
  Transmission Date: 20141002
  Serious: Yes (Hospitalization)
  Sender: FDA-Public Use
  Company Number: DE-GLAXOSMITHKLINE-D0081892A

PATIENT
  Age: 1 Month
  Sex: Male
  Weight: 3.7 kg

DRUGS (2)
  1. SULTANOL [Suspect]
     Dosage: 18MG SINGLE DOSE
     Route: 055
     Dates: start: 20131118, end: 20131118
  2. ATROVENT [Suspect]
     Dosage: 1.5MG SINGLE DOSE
     Route: 055
     Dates: start: 20131118, end: 20131118

REACTIONS (2)
  - Tachycardia [Unknown]
  - Accidental overdose [Unknown]
